FAERS Safety Report 9462568 (Version 2)
Quarter: 2013Q4

REPORT INFORMATION
  Report Type: Spontaneous
  Country: US (occurrence: US)
  Receive Date: 20130816
  Receipt Date: 20131106
  Transmission Date: 20140711
  Serious: Yes (Death, Hospitalization, Other)
  Sender: FDA-Public Use
  Company Number: US-BRISTOL-MYERS SQUIBB COMPANY-18553685

PATIENT
  Age: 53 Year
  Sex: Female

DRUGS (5)
  1. BYETTA PEN DISPOSABLE [Suspect]
     Indication: TYPE 2 DIABETES MELLITUS
     Dates: start: 20060125
  2. JANUVIA [Concomitant]
     Dates: start: 20060125
  3. INSULIN [Concomitant]
  4. SYNTHROID [Concomitant]
  5. PREVACID [Concomitant]

REACTIONS (4)
  - Adenocarcinoma pancreas [Fatal]
  - Hepatitis [Unknown]
  - Pancreatitis chronic [Unknown]
  - Injury [Unknown]
